FAERS Safety Report 10525021 (Version 1)
Quarter: 2014Q4

REPORT INFORMATION
  Report Type: Spontaneous
  Country: US (occurrence: None)
  Receive Date: 20141015
  Receipt Date: 20141015
  Transmission Date: 20150528
  Serious: Yes (Hospitalization)
  Sender: FDA-Public Use
  Company Number: None

PATIENT
  Age: 59 Year
  Sex: Female
  Weight: 62.1 kg

DRUGS (34)
  1. ALPRAZOLAM. [Concomitant]
     Active Substance: ALPRAZOLAM
  2. VITAMINS NOS [Concomitant]
     Active Substance: VITAMINS
  3. DEPO-ESTRADIOL [Concomitant]
     Active Substance: ESTRADIOL CYPIONATE
  4. TRAZODONE [Concomitant]
     Active Substance: TRAZODONE HYDROCHLORIDE
  5. ACETONIDE TOPICAL CREAM [Concomitant]
  6. AVINZA [Concomitant]
     Active Substance: MORPHINE SULFATE
  7. ESTRACE [Concomitant]
     Active Substance: ESTRADIOL
  8. ZONISAMIDE. [Concomitant]
     Active Substance: ZONISAMIDE
  9. CALCIUM 500 +D (D3) [Concomitant]
  10. FETZIMA [Concomitant]
     Active Substance: LEVOMILNACIPRAN HYDROCHLORIDE
  11. HYOSCYAMINE SULFATE. [Concomitant]
     Active Substance: HYOSCYAMINE SULFATE
  12. OXCARBAZEPINE. [Concomitant]
     Active Substance: OXCARBAZEPINE
  13. TRIAMCINOLONE ACETONIDE. [Concomitant]
     Active Substance: TRIAMCINOLONE ACETONIDE
  14. XYZAL [Concomitant]
     Active Substance: LEVOCETIRIZINE DIHYDROCHLORIDE
  15. ADDERALL [Concomitant]
     Active Substance: AMPHETAMINE ASPARTATE\AMPHETAMINE SULFATE\DEXTROAMPHETAMINE SACCHARATE\DEXTROAMPHETAMINE SULFATE
  16. BUTALBITAL-ACETAMINOPHEN-CAFFEINE [Concomitant]
  17. FLUCONAZOLE. [Concomitant]
     Active Substance: FLUCONAZOLE
  18. PRO AIR HFA [Concomitant]
  19. VITAMIN D [Concomitant]
     Active Substance: CHOLECALCIFEROL
  20. AMITIZA [Concomitant]
     Active Substance: LUBIPROSTONE
  21. AZITHROMYCIN [Concomitant]
     Active Substance: AZITHROMYCIN ANHYDROUS
  22. CLINDAMAX [Concomitant]
     Active Substance: CLINDAMYCIN PHOSPHATE
  23. FLONASE [Concomitant]
     Active Substance: FLUTICASONE PROPIONATE
  24. DIAZEPAM. [Concomitant]
     Active Substance: DIAZEPAM
  25. DULCOLAX [Concomitant]
     Active Substance: BISACODYL OR DOCUSATE SODIUM
  26. FOLIC ACID. [Concomitant]
     Active Substance: FOLIC ACID
  27. METRONIDAZOLE. [Concomitant]
     Active Substance: METRONIDAZOLE
  28. RESTORIL [Concomitant]
     Active Substance: TEMAZEPAM
  29. GABAPENTIN. [Concomitant]
     Active Substance: GABAPENTIN
  30. MECLIZINE [Concomitant]
     Active Substance: MECLIZINE\MECLIZINE HYDROCHLORIDE
  31. ALEMTUZUMAB [Suspect]
     Active Substance: ALEMTUZUMAB
     Dosage: 12 MG IV QD X 3 DAYS
     Route: 042
     Dates: start: 20130924, end: 20130926
  32. SYNTHROID [Concomitant]
     Active Substance: LEVOTHYROXINE SODIUM
  33. BACLOFEN. [Concomitant]
     Active Substance: BACLOFEN
  34. MIRALAX [Concomitant]
     Active Substance: POLYETHYLENE GLYCOL 3350

REACTIONS (2)
  - Suicidal ideation [None]
  - Condition aggravated [None]

NARRATIVE: CASE EVENT DATE: 20141001
